FAERS Safety Report 23704441 (Version 2)
Quarter: 2024Q2

REPORT INFORMATION
  Report Type: Spontaneous
  Country: US (occurrence: US)
  Receive Date: 20240404
  Receipt Date: 20240514
  Transmission Date: 20240717
  Serious: Yes (Other)
  Sender: FDA-Public Use
  Company Number: US-SA-SAC20240401001029

PATIENT
  Age: 64 Year
  Sex: Female

DRUGS (1)
  1. DUPIXENT [Suspect]
     Active Substance: DUPILUMAB
     Indication: Dermatitis atopic
     Dosage: 300 MG, QOW
     Route: 058

REACTIONS (10)
  - Neuropathy peripheral [Unknown]
  - Condition aggravated [Unknown]
  - Skin abrasion [Unknown]
  - Pruritus [Unknown]
  - Skin swelling [Unknown]
  - Insomnia [Unknown]
  - Pain of skin [Unknown]
  - Skin burning sensation [Unknown]
  - Arthralgia [Unknown]
  - Hypersensitivity [Unknown]
